FAERS Safety Report 9804381 (Version 2)
Quarter: 2014Q1

REPORT INFORMATION
  Report Type: Spontaneous
  Country: US (occurrence: US)
  Receive Date: 20140108
  Receipt Date: 20140108
  Transmission Date: 20141002
  Serious: Yes (Other)
  Sender: FDA-Public Use
  Company Number: US-CELGENEUS-163-POMAL-13120551

PATIENT
  Sex: Male

DRUGS (8)
  1. POMALYST [Suspect]
     Indication: PLASMA CELL MYELOMA
     Dosage: 4 MILLIGRAM
     Route: 048
     Dates: start: 20130528
  2. POMALYST [Suspect]
     Dosage: 4 MILLIGRAM
     Route: 048
     Dates: start: 20130612, end: 20130819
  3. CLARITHROMYCIN [Concomitant]
     Indication: PLASMA CELL MYELOMA
     Route: 065
     Dates: start: 20130528
  4. DEXAMETHASONE [Concomitant]
     Indication: PLASMA CELL MYELOMA
     Route: 065
     Dates: start: 201011
  5. DEXAMETHASONE [Concomitant]
     Route: 065
     Dates: start: 201211
  6. DEXAMETHASONE [Concomitant]
     Route: 065
     Dates: start: 20130528
  7. COUMADIN [Concomitant]
     Indication: DEEP VEIN THROMBOSIS
     Route: 065
  8. COUMADIN [Concomitant]
     Route: 065

REACTIONS (4)
  - Pancytopenia [Unknown]
  - Cognitive disorder [Unknown]
  - Weight decreased [Unknown]
  - Plasma cell myeloma [Recovered/Resolved]
